FAERS Safety Report 9091510 (Version 1)
Quarter: 2013Q1

REPORT INFORMATION
  Report Type: Spontaneous
  Country: IT (occurrence: IT)
  Receive Date: 20130202
  Receipt Date: 20130202
  Transmission Date: 20140127
  Serious: Yes (Life-Threatening)
  Sender: FDA-Public Use
  Company Number: IT-ACCORD-016132

PATIENT
  Age: 60 Year
  Sex: Male

DRUGS (2)
  1. DOCETAXEL [Suspect]
     Indication: LUNG NEOPLASM MALIGNANT
     Dosage: FREQUENCY:TOTALLY
     Route: 042
     Dates: start: 20121206, end: 20121206
  2. CISPLATIN [Concomitant]
     Dates: start: 20121115, end: 20121206

REACTIONS (3)
  - Bronchostenosis [Recovering/Resolving]
  - Hypersensitivity [Recovering/Resolving]
  - Throat tightness [Recovering/Resolving]
